FAERS Safety Report 5094967-9 (Version None)
Quarter: 2006Q3

REPORT INFORMATION
  Report Type: 
  Country: None (occurrence: None)
  Receive Date: 20060901
  Receipt Date: 20060502
  Transmission Date: 20061208
  Serious: Yes (Other)
  Sender: FDA-Public Use
  Company Number: PHMT2006CA01179

PATIENT
  Age: 74 Year
  Sex: Male

DRUGS (7)
  1. EXELON [Suspect]
     Indication: DEMENTIA ALZHEIMER'S TYPE
     Dosage: 3 MG
     Route: 048
     Dates: start: 20050707, end: 20050808
  2. NEXIUM [Concomitant]
  3. PENTA-3B [Concomitant]
  4. FLONASE [Concomitant]
  5. ZOPLICONE [Concomitant]
  6. FLOMAX [Concomitant]
  7. MIRTAZAPINE [Concomitant]

REACTIONS (4)
  - LOSS OF CONSCIOUSNESS [None]
  - NAUSEA [None]
  - VERTIGO [None]
  - VOMITING [None]
